FAERS Safety Report 16870054 (Version 2)
Quarter: 2019Q4

REPORT INFORMATION
  Report Type: Spontaneous
  Country: FR (occurrence: FR)
  Receive Date: 20190930
  Receipt Date: 20191112
  Transmission Date: 20200122
  Serious: Yes (Hospitalization)
  Sender: FDA-Public Use
  Company Number: FR-MYLANLABS-2019M1090482

PATIENT
  Age: 62 Year
  Sex: Female
  Weight: 70 kg

DRUGS (3)
  1. HERCEPTIN [Suspect]
     Active Substance: TRASTUZUMAB
     Indication: BREAST CANCER METASTATIC
     Dosage: 408 MG,UNK
     Route: 042
     Dates: start: 20120502, end: 20120502
  2. TAXOTERE [Suspect]
     Active Substance: DOCETAXEL
     Indication: BREAST CANCER METASTATIC
     Dosage: 168 MG,UNK
     Route: 042
     Dates: start: 20120502, end: 20120502
  3. TAXOTERE [Suspect]
     Active Substance: DOCETAXEL

REACTIONS (1)
  - Capillary leak syndrome [Recovering/Resolving]

NARRATIVE: CASE EVENT DATE: 20120506
